FAERS Safety Report 8875735 (Version 2)
Quarter: 2013Q3

REPORT INFORMATION
  Report Type: Spontaneous
  Country: JP (occurrence: JP)
  Receive Date: 20121023
  Receipt Date: 20130902
  Transmission Date: 20140515
  Serious: No
  Sender: FDA-Public Use
  Company Number: PHHY2012JP092935

PATIENT
  Age: 60 Year
  Sex: Female

DRUGS (1)
  1. NEORAL [Suspect]
     Indication: COLLAGEN DISORDER
     Route: 048

REACTIONS (1)
  - Tuberculin test positive [Recovered/Resolved]
